FAERS Safety Report 21583427 (Version 1)
Quarter: 2022Q4

REPORT INFORMATION
  Report Type: Spontaneous
  Country: US (occurrence: None)
  Receive Date: 20221110
  Receipt Date: 20221110
  Transmission Date: 20230113
  Serious: No
  Sender: FDA-Public Use
  Company Number: None

PATIENT
  Age: 16 Year
  Sex: Male

DRUGS (2)
  1. COSENTYX [Suspect]
     Active Substance: SECUKINUMAB
     Indication: Ankylosing spondylitis
     Dosage: 150MG EVERY 4 WEEKS SUB-Q
     Route: 058
     Dates: start: 20220728
  2. COSENTYX [Suspect]
     Active Substance: SECUKINUMAB
     Indication: Juvenile idiopathic arthritis

REACTIONS (3)
  - Device defective [None]
  - Pain [None]
  - Drug dose omission by device [None]

NARRATIVE: CASE EVENT DATE: 20221101
